FAERS Safety Report 17089454 (Version 1)
Quarter: 2019Q4

REPORT INFORMATION
  Report Type: Spontaneous
  Country: US (occurrence: US)
  Receive Date: 20191128
  Receipt Date: 20191128
  Transmission Date: 20200122
  Serious: No
  Sender: FDA-Public Use
  Company Number: US-TEVA-2019-US-1142867

PATIENT

DRUGS (1)
  1. ADDERALL [Suspect]
     Active Substance: AMPHETAMINE ASPARTATE\AMPHETAMINE SULFATE\DEXTROAMPHETAMINE SACCHARATE\DEXTROAMPHETAMINE SULFATE
     Route: 065

REACTIONS (7)
  - Product substitution issue [Unknown]
  - Abdominal distension [Unknown]
  - Headache [Unknown]
  - Somnolence [Unknown]
  - Therapeutic product effect decreased [Unknown]
  - Nausea [Unknown]
  - Product quality issue [Unknown]
